FAERS Safety Report 5522551-9 (Version None)
Quarter: 2007Q4

REPORT INFORMATION
  Report Type: 
  Country: None (occurrence: None)
  Receive Date: 20071120
  Receipt Date: 20071112
  Transmission Date: 20080405
  Serious: Yes (Hospitalization, Other)
  Sender: FDA-Public Use
  Company Number: US-PFIZER INC-2007091635

PATIENT
  Sex: Male
  Weight: 81.4 kg

DRUGS (7)
  1. VIAGRA [Suspect]
     Indication: ERECTILE DYSFUNCTION
     Dosage: TEXT:25MG OR 50MG
  2. CAVERJECT [Suspect]
  3. ACETYLSALICYLIC ACID SRT [Concomitant]
     Dosage: TEXT:DAILY
  4. LIPITOR [Concomitant]
     Dosage: TEXT:10 MG CUT IN HALF
  5. CENTRUM SILVER [Concomitant]
  6. CITRUCEL [Concomitant]
  7. CARDURA [Concomitant]

REACTIONS (13)
  - ARTERIAL DISORDER [None]
  - ARTHRITIS [None]
  - CONTUSION [None]
  - CORONARY ARTERY OCCLUSION [None]
  - DEVICE FAILURE [None]
  - DRUG INEFFECTIVE [None]
  - DYSURIA [None]
  - ERECTILE DYSFUNCTION [None]
  - LOSS OF LIBIDO [None]
  - PHARMACEUTICAL PRODUCT COMPLAINT [None]
  - POLLAKIURIA [None]
  - PROSTATOMEGALY [None]
  - WRONG TECHNIQUE IN DRUG USAGE PROCESS [None]
